FAERS Safety Report 9322529 (Version 1)
Quarter: 2013Q2

REPORT INFORMATION
  Report Type: Spontaneous
  Country: GA (occurrence: GA)
  Receive Date: 20130531
  Receipt Date: 20130531
  Transmission Date: 20140414
  Serious: Yes (Other)
  Sender: FDA-Public Use
  Company Number: GA-ASTRAZENECA-2013SE36330

PATIENT
  Age: 56 Year
  Sex: Male

DRUGS (1)
  1. CANDESARTAN CILEXETIL/HYDROCHLOROTHIAZIDE [Suspect]
     Indication: HYPERTENSION
     Dosage: 8/12.5 MG
     Route: 048

REACTIONS (1)
  - Alveolitis [Recovered/Resolved]
